FAERS Safety Report 24224825 (Version 1)
Quarter: 2024Q3

REPORT INFORMATION
  Report Type: Report from Study
  Country: BR (occurrence: BR)
  Receive Date: 20240819
  Receipt Date: 20240819
  Transmission Date: 20241017
  Serious: Yes (Hospitalization, Other)
  Sender: TAKEDA
  Company Number: BR-TAKEDA-2024TUS077224

PATIENT
  Age: 57 Year
  Sex: Male

DRUGS (1)
  1. VEDOLIZUMAB [Suspect]
     Active Substance: VEDOLIZUMAB
     Indication: Colitis ulcerative
     Dosage: 300 MILLIGRAM
     Route: 042
     Dates: start: 20220715

REACTIONS (4)
  - Thrombosis [Not Recovered/Not Resolved]
  - Head injury [Recovering/Resolving]
  - Accident [Unknown]
  - Confusional state [Unknown]

NARRATIVE: CASE EVENT DATE: 20240720
